APPROVED DRUG PRODUCT: AUGMENTIN '500'
Active Ingredient: AMOXICILLIN; CLAVULANATE POTASSIUM
Strength: 500MG;EQ 125MG BASE **Federal Register determination that product was not discontinued or withdrawn for safety or effectiveness reasons**
Dosage Form/Route: TABLET;ORAL
Application: N050564 | Product #002
Applicant: US ANTIBIOTICS LLC
Approved: Aug 6, 1984 | RLD: Yes | RS: No | Type: DISCN